FAERS Safety Report 8029314-3 (Version None)
Quarter: 2012Q1

REPORT INFORMATION
  Report Type: 
  Country: None (occurrence: None)
  Receive Date: 20120106
  Receipt Date: 20111227
  Transmission Date: 20120608
  Serious: Yes (Hospitalization)
  Sender: FDA-Public Use
  Company Number: JP-AMGEN-JPNCT2011042536

PATIENT
  Age: 79 Year
  Sex: Male
  Weight: 46 kg

DRUGS (8)
  1. PANITUMUMAB [Suspect]
     Indication: COLORECTAL CANCER
     Dosage: 300 MG, Q2WK
     Route: 041
     Dates: start: 20110426, end: 20110426
  2. FLUOROURACIL [Concomitant]
     Route: 041
     Dates: start: 20110525, end: 20110525
  3. IRINOTECAN HYDROCHLORIDE [Concomitant]
     Route: 041
     Dates: start: 20110525, end: 20110525
  4. PANITUMUMAB [Suspect]
     Dosage: 300 MG, Q2WK
     Route: 041
     Dates: start: 20110525, end: 20110525
  5. LEVOLEUCOVORIN CALCIUM [Concomitant]
     Indication: COLORECTAL CANCER
     Route: 041
     Dates: start: 20110426, end: 20110426
  6. FLUOROURACIL [Concomitant]
     Indication: COLORECTAL CANCER
     Route: 041
     Dates: start: 20110426, end: 20110426
  7. IRINOTECAN HYDROCHLORIDE [Concomitant]
     Indication: COLORECTAL CANCER
     Route: 041
     Dates: start: 20110426, end: 20110426
  8. LEVOLEUCOVORIN CALCIUM [Concomitant]
     Route: 041
     Dates: start: 20110525, end: 20110525

REACTIONS (2)
  - MALAISE [None]
  - INTERSTITIAL LUNG DISEASE [None]
